FAERS Safety Report 5267213-0 (Version None)
Quarter: 2007Q1

REPORT INFORMATION
  Report Type: 
  Country: None (occurrence: None)
  Receive Date: 20070316
  Receipt Date: 20070306
  Transmission Date: 20070707
  Serious: Yes (Death)
  Sender: FDA-Public Use
  Company Number: GB-GLAXOSMITHKLINE-B0462054A

PATIENT
  Age: 34 Year
  Sex: Male

DRUGS (6)
  1. ACETAMINOPHEN [Suspect]
     Indication: DRUG USE FOR UNKNOWN INDICATION
  2. AMISULPRIDE [Suspect]
     Indication: DRUG USE FOR UNKNOWN INDICATION
  3. ZAPONEX [Suspect]
     Dosage: 300MG PER DAY
     Route: 048
  4. FLUOXETINE [Concomitant]
     Indication: DEPRESSION
     Dates: start: 20000101
  5. EPHEDRINE SUL CAP [Concomitant]
  6. PSEUDOEPHEDRINE HCL [Concomitant]

REACTIONS (3)
  - DRUG TOXICITY [None]
  - OVERDOSE [None]
  - PULMONARY OEDEMA [None]
